FAERS Safety Report 8138235-7 (Version None)
Quarter: 2012Q1

REPORT INFORMATION
  Report Type: 
  Country: None (occurrence: None)
  Receive Date: 20120215
  Receipt Date: 20120210
  Transmission Date: 20120608
  Serious: Yes (Death, Hospitalization, Other)
  Sender: FDA-Public Use
  Company Number: PHHY2012FR011545

PATIENT
  Age: 55 Year
  Sex: Female

DRUGS (3)
  1. AFINITOR [Suspect]
     Indication: NEUROENDOCRINE TUMOUR
     Dosage: 5 MG, DAILY
     Dates: start: 20110801
  2. AFINITOR [Suspect]
     Dosage: 10 MG, DAILY
     Dates: start: 20110901
  3. AFINITOR [Suspect]
     Dosage: 5 MG,DAILY
     Dates: start: 20111201, end: 20111201

REACTIONS (3)
  - RENAL FAILURE [None]
  - LUNG INFECTION [None]
  - DIABETIC COMPLICATION [None]
